FAERS Safety Report 9253862 (Version 1)
Quarter: 2013Q1

REPORT INFORMATION
  Report Type: Spontaneous
  Country: US (occurrence: None)
  Receive Date: 20121203
  Receipt Date: 20121203
  Transmission Date: 20140127
  Serious: Yes (Hospitalization, Disabling, Other)
  Sender: FDA-Public Use
  Company Number: 2008-188696-NL

PATIENT
  Age: 37 Year
  Sex: Female
  Weight: 68 kg

DRUGS (5)
  1. NUVARING (ETONOGESTREL (+) ETHINYL ESTRADIOL VAGINAL RING [Suspect]
     Indication: CONTRACEPTION
     Dosage: CONTINUING: NO
     Dates: start: 200311, end: 20041020
  2. NUVARING (ETONOGESTREL (+) ETHINYL ESTRADIOL VAGINAL RING [Suspect]
     Indication: MENORRHAGIA
     Dosage: CONTINUING: NO
     Dates: start: 200311, end: 20041020
  3. IBUPROFEN (IBUPROFEN) TABLET [Concomitant]
  4. ALLEGRA [Concomitant]
  5. CELEXA (CITALOPRAM HYDROBROMIDE) [Concomitant]

REACTIONS (11)
  - Pulmonary embolism [None]
  - Fibrocystic breast disease [None]
  - Pulmonary infarction [None]
  - Hypophosphataemia [None]
  - Sinus disorder [None]
  - Rhinitis [None]
  - Dyspnoea [None]
  - Nasal obstruction [None]
  - Off label use [None]
  - Carpal tunnel syndrome [None]
  - Upper extremity mass [None]
